FAERS Safety Report 19889890 (Version 1)
Quarter: 2021Q3

REPORT INFORMATION
  Report Type: Spontaneous
  Country: PT (occurrence: PT)
  Receive Date: 20210927
  Receipt Date: 20210927
  Transmission Date: 20211014
  Serious: Yes (Other)
  Sender: FDA-Public Use
  Company Number: PT-ABBVIE-21K-130-4088341-00

PATIENT
  Age: 24 Year
  Sex: Male

DRUGS (4)
  1. OLANZAPINE. [Concomitant]
     Active Substance: OLANZAPINE
     Indication: PRODUCT USED FOR UNKNOWN INDICATION
  2. VALPROIC ACID. [Suspect]
     Active Substance: VALPROIC ACID
     Indication: DELUSIONAL DISORDER, PERSECUTORY TYPE
  3. HALOPERIDOL. [Concomitant]
     Active Substance: HALOPERIDOL
     Indication: PRODUCT USED FOR UNKNOWN INDICATION
  4. VALPROIC ACID. [Suspect]
     Active Substance: VALPROIC ACID
     Indication: HALLUCINATION, AUDITORY
     Route: 065

REACTIONS (9)
  - Mouth haemorrhage [Unknown]
  - Necrosis [Unknown]
  - Gingival ulceration [Unknown]
  - Oral mucosal erythema [Unknown]
  - Haemorrhage [Unknown]
  - Myalgia [Unknown]
  - Lip ulceration [Unknown]
  - Pain [Unknown]
  - Injury [Unknown]
